FAERS Safety Report 7465968-8 (Version None)
Quarter: 2011Q2

REPORT INFORMATION
  Report Type: 
  Country: None (occurrence: None)
  Receive Date: 20110509
  Receipt Date: 20100520
  Transmission Date: 20111010
  Serious: No
  Sender: FDA-Public Use
  Company Number: US-ALEXION-A201000587

PATIENT
  Sex: Female

DRUGS (6)
  1. AMLODIPINE BESYLATE [Concomitant]
     Dosage: 5 MG, QD
  2. SOLIRIS [Suspect]
     Indication: PAROXYSMAL NOCTURNAL HAEMOGLOBINURIA
     Dosage: 600 MG, UNK
     Route: 042
     Dates: start: 20070625
  3. LISINOPRIL [Concomitant]
     Dosage: 20 MG, QD
  4. FOLIC ACID [Concomitant]
  5. CALCIUM WITH VITAMIN D             /00944201/ [Concomitant]
     Dosage: 500 MG, QD
  6. SOLIRIS [Suspect]
     Dosage: 900 MG, Q2WKS
     Route: 042

REACTIONS (5)
  - INSOMNIA [None]
  - RHINORRHOEA [None]
  - DIZZINESS [None]
  - ABDOMINAL DISTENSION [None]
  - HEADACHE [None]
